FAERS Safety Report 24706147 (Version 1)
Quarter: 2024Q4

REPORT INFORMATION
  Report Type: Spontaneous
  Country: US (occurrence: None)
  Receive Date: 20241206
  Receipt Date: 20241206
  Transmission Date: 20250114
  Serious: Yes (Hospitalization)
  Sender: Public
  Company Number: None

PATIENT
  Age: 84 Year
  Sex: Male
  Weight: 81 kg

DRUGS (1)
  1. LUTETIUM OXODOTREOTIDE LU-177 [Suspect]
     Active Substance: LUTETIUM OXODOTREOTIDE LU-177
     Dates: end: 20240105

REACTIONS (13)
  - Nausea [None]
  - Diarrhoea [None]
  - Pallor [None]
  - Cold sweat [None]
  - Loss of consciousness [None]
  - Acute myocardial infarction [None]
  - Bradycardia [None]
  - Supraventricular extrasystoles [None]
  - Coronary artery stenosis [None]
  - Coronary artery stenosis [None]
  - Coronary artery stenosis [None]
  - Left ventricular dysfunction [None]
  - Acute coronary syndrome [None]

NARRATIVE: CASE EVENT DATE: 20240609
